FAERS Safety Report 8234542-8 (Version None)
Quarter: 2012Q1

REPORT INFORMATION
  Report Type: 
  Country: None (occurrence: None)
  Receive Date: 20120322
  Receipt Date: 20120309
  Transmission Date: 20120608
  Serious: Yes (Hospitalization)
  Sender: FDA-Public Use
  Company Number: 2012SP010569

PATIENT
  Age: 46 Year
  Sex: Female

DRUGS (6)
  1. MIRTAZAPINE [Suspect]
     Indication: MAJOR DEPRESSION
     Dosage: 1 DF; QD  2 DF; QD  3 DF;QD  2 DF; QD;
     Dates: start: 20110901
  2. MIRTAZAPINE [Suspect]
     Indication: MAJOR DEPRESSION
     Dosage: 1 DF; QD  2 DF; QD  3 DF;QD  2 DF; QD;
     Dates: start: 20110805
  3. MIRTAZAPINE [Suspect]
     Indication: MAJOR DEPRESSION
     Dosage: 1 DF; QD  2 DF; QD  3 DF;QD  2 DF; QD;
  4. XANAX [Concomitant]
  5. ZOLPIDEM [Concomitant]
  6. LEVOTHYROXINE SODIUM [Concomitant]

REACTIONS (4)
  - DECREASED APPETITE [None]
  - MUSCULOSKELETAL CHEST PAIN [None]
  - VIRAL PERICARDITIS [None]
  - ASTHENIA [None]
